FAERS Safety Report 4279299-0 (Version None)
Quarter: 2004Q1

REPORT INFORMATION
  Report Type: 
  Country: None (occurrence: None)
  Receive Date: 20040126
  Receipt Date: 20040126
  Transmission Date: 20041129
  Serious: Yes (Life-Threatening, Hospitalization)
  Sender: FDA-Public Use
  Company Number: None

PATIENT
  Sex: Female
  Weight: 54.4316 kg

DRUGS (2)
  1. PROCRIT 40,000UNITS ORTHO BIOTECH [Suspect]
     Indication: PHARYNGEAL CANCER STAGE UNSPECIFIED
     Dosage: 40,000 WEEKLY UNITS SUBCUTANEOUS
     Route: 058
     Dates: start: 20030826, end: 20030923
  2. PROCRIT 40,000UNITS ORTHO BIOTECH [Suspect]
     Indication: PHARYNGEAL CANCER STAGE UNSPECIFIED
     Dosage: 40,000 WEEKLY UNITS SUBCUTANEOUS
     Route: 058
     Dates: start: 20031118, end: 20031118

REACTIONS (1)
  - DEEP VEIN THROMBOSIS [None]
